FAERS Safety Report 5959498-X (Version None)
Quarter: 2008Q4

REPORT INFORMATION
  Report Type: 
  Country: None (occurrence: None)
  Receive Date: 20081117
  Receipt Date: 20081031
  Transmission Date: 20090506
  Serious: Yes (Other)
  Sender: FDA-Public Use
  Company Number: 2008US003011

PATIENT
  Age: 76 Year
  Sex: Male

DRUGS (1)
  1. AMBISOME [Suspect]
     Indication: FUNGUS SEROLOGY TEST POSITIVE
     Dosage: 2.5 MG/KG, UID/QD
     Dates: start: 20081008, end: 20081010

REACTIONS (5)
  - ANOREXIA [None]
  - BLOOD UREA INCREASED [None]
  - C-REACTIVE PROTEIN INCREASED [None]
  - MALAISE [None]
  - PYREXIA [None]
